FAERS Safety Report 9686838 (Version 2)
Quarter: 2013Q4

REPORT INFORMATION
  Report Type: Spontaneous
  Country: US (occurrence: US)
  Receive Date: 20131113
  Receipt Date: 20131218
  Transmission Date: 20140711
  Serious: Yes (Disabling)
  Sender: FDA-Public Use
  Company Number: US-PFIZER INC-2013323372

PATIENT
  Age: 65 Year
  Sex: Male
  Weight: 86.17 kg

DRUGS (14)
  1. LYRICA [Suspect]
     Indication: NEURALGIA
     Dosage: 75 MG, 2X/DAY
     Dates: start: 2011
  2. LISINOPRIL W/HYDROCHLOROTHIAZIDE [Concomitant]
     Dosage: ^20MG^ DAILY
  3. CYANOCOBALAMIN [Concomitant]
     Dosage: 1000 MG, DAILY
  4. PANTOPRAZOLE [Concomitant]
     Dosage: 40 MG, DAILY
  5. METFORMIN HYDROCHLORIDE [Concomitant]
     Dosage: 500 MG, DAILY
  6. AMLODIPINE BESILATE/ATORVASTATIN CALCIUM [Concomitant]
     Dosage: 10 MG OF AMLODIPINE BESILATE/40 MG OF ATORVASTATIN CALCIUM, 1X/DAY
  7. ASPIRIN [Concomitant]
     Dosage: 81 MG, DAILY
  8. METOPROLOL [Concomitant]
     Dosage: 50 MG, 2X/DAY
  9. TRAZODONE [Concomitant]
     Dosage: 50 MG, DAILY
  10. MECLIZINE [Concomitant]
     Dosage: 12.5 MG, 3X/DAY
  11. CLONAZEPAM [Concomitant]
     Dosage: 1 MG, 2X/DAY
  12. REMICADE [Concomitant]
     Dosage: 800 MG, ONCE IN TWO MONTHS
  13. SERTRALINE [Concomitant]
     Dosage: 100 MG, DAILY
  14. CLARITIN [Concomitant]
     Dosage: UNK, DAILY

REACTIONS (2)
  - Diabetic neuropathy [Unknown]
  - Post-traumatic stress disorder [Unknown]
